FAERS Safety Report 13058930 (Version 1)
Quarter: 2016Q4

REPORT INFORMATION
  Report Type: Spontaneous
  Country: US (occurrence: US)
  Receive Date: 20161223
  Receipt Date: 20161223
  Transmission Date: 20170207
  Serious: No
  Sender: FDA-Public Use
  Company Number: None

PATIENT
  Age: 76 Year
  Sex: Female

DRUGS (6)
  1. IMATINIB MES TAB 400MG [Suspect]
     Active Substance: IMATINIB
     Indication: CARDIAC DISORDER
     Route: 048
     Dates: start: 20160424
  2. IMATINIB MES TAB 400MG [Suspect]
     Active Substance: IMATINIB
     Indication: ARTHROPATHY
     Route: 048
     Dates: start: 20160424
  3. IMATINIB MES TAB 400MG [Suspect]
     Active Substance: IMATINIB
     Indication: TYPE 2 DIABETES MELLITUS
     Route: 048
     Dates: start: 20160424
  4. IMATINIB MES TAB 400MG [Suspect]
     Active Substance: IMATINIB
     Indication: HYPERLIPIDAEMIA
     Route: 048
     Dates: start: 20160424
  5. IMATINIB MES TAB 400MG [Suspect]
     Active Substance: IMATINIB
     Indication: ESSENTIAL HYPERTENSION
     Route: 048
     Dates: start: 20160424
  6. IMATINIB MES TAB 400MG [Suspect]
     Active Substance: IMATINIB
     Indication: NEOPLASM MALIGNANT
     Route: 048
     Dates: start: 20160424

REACTIONS (2)
  - Muscle spasms [None]
  - Pruritus [None]

NARRATIVE: CASE EVENT DATE: 20161223
